FAERS Safety Report 11745904 (Version 1)
Quarter: 2015Q4

REPORT INFORMATION
  Report Type: Spontaneous
  Country: NO (occurrence: NO)
  Receive Date: 20151117
  Receipt Date: 20151117
  Transmission Date: 20160304
  Serious: Yes (Hospitalization)
  Sender: FDA-Public Use
  Company Number: PHHY2015NO144906

PATIENT
  Sex: Female

DRUGS (4)
  1. RITALIN LA [Suspect]
     Active Substance: METHYLPHENIDATE HYDROCHLORIDE
     Dosage: 30 MG, BID
     Route: 065
     Dates: start: 201506
  2. METOPROLOL [Concomitant]
     Active Substance: METOPROLOL
     Indication: HEART RATE INCREASED
     Route: 065
  3. RITALIN LA [Suspect]
     Active Substance: METHYLPHENIDATE HYDROCHLORIDE
     Dosage: 40 MG, QD
     Route: 065
     Dates: start: 20150805, end: 20151105
  4. RITALIN LA [Suspect]
     Active Substance: METHYLPHENIDATE HYDROCHLORIDE
     Indication: ATTENTION DEFICIT/HYPERACTIVITY DISORDER
     Dosage: UNK
     Route: 065
     Dates: start: 201505

REACTIONS (10)
  - Social phobia [Unknown]
  - Psychotic behaviour [Not Recovered/Not Resolved]
  - Cheilitis [Unknown]
  - Psychotic disorder [Unknown]
  - Nail injury [Unknown]
  - Obsessive-compulsive personality disorder [Unknown]
  - Pain in extremity [Unknown]
  - Abdominal pain [Unknown]
  - Depression [Unknown]
  - Weight decreased [Unknown]
